FAERS Safety Report 17338457 (Version 1)
Quarter: 2020Q1

REPORT INFORMATION
  Report Type: Spontaneous
  Country: US (occurrence: US)
  Receive Date: 20200128
  Receipt Date: 20200128
  Transmission Date: 20200409
  Serious: No
  Sender: FDA-Public Use
  Company Number: None

PATIENT
  Age: 41 Year
  Sex: Female
  Weight: 71.1 kg

DRUGS (1)
  1. NEUPOGEN [Suspect]
     Active Substance: FILGRASTIM
     Indication: WHITE BLOOD CELL COUNT DECREASED
     Dosage: ?          OTHER FREQUENCY:BIW;?
     Route: 058

REACTIONS (2)
  - Fatigue [None]
  - Increased tendency to bruise [None]

NARRATIVE: CASE EVENT DATE: 20200128
